FAERS Safety Report 9765725 (Version 1)
Quarter: 2013Q4

REPORT INFORMATION
  Report Type: Spontaneous
  Country: FR (occurrence: FR)
  Receive Date: 20131217
  Receipt Date: 20131217
  Transmission Date: 20140711
  Serious: Yes (Hospitalization)
  Sender: FDA-Public Use
  Company Number: FR-JNJFOC-20131204113

PATIENT
  Age: 49 Year
  Sex: Male

DRUGS (4)
  1. REOPRO [Suspect]
     Indication: ANGIOPLASTY
     Route: 042
     Dates: start: 20131102, end: 20131102
  2. LOVENOX [Concomitant]
     Route: 065
  3. ASPEGIC [Concomitant]
     Route: 065
  4. BRILIQUE [Concomitant]
     Route: 065

REACTIONS (2)
  - Thrombocytopenia [Recovered/Resolved]
  - Rash [Recovered/Resolved]
